FAERS Safety Report 25779304 (Version 1)
Quarter: 2025Q3

REPORT INFORMATION
  Report Type: Spontaneous
  Country: JP (occurrence: JP)
  Receive Date: 20250909
  Receipt Date: 20250909
  Transmission Date: 20251021
  Serious: Yes (Other)
  Sender: ALEXION PHARMACEUTICALS
  Company Number: JP-ASTRAZENECA-202508JPN023605JP

PATIENT
  Age: 81 Year
  Sex: Female
  Weight: 38 kg

DRUGS (3)
  1. DAPAGLIFLOZIN [Suspect]
     Active Substance: DAPAGLIFLOZIN
     Indication: Diabetes mellitus
     Route: 065
  2. SITAGLIPTIN [Concomitant]
     Active Substance: SITAGLIPTIN
  3. AMARYL [Concomitant]
     Active Substance: GLIMEPIRIDE
     Indication: Glycosylated haemoglobin

REACTIONS (10)
  - Euglycaemic diabetic ketoacidosis [Unknown]
  - Depressed level of consciousness [Unknown]
  - Glycosylated haemoglobin increased [Unknown]
  - Decreased appetite [Recovering/Resolving]
  - Vomiting [Unknown]
  - White blood cell count increased [Unknown]
  - Blood pressure systolic decreased [Unknown]
  - Infection [Unknown]
  - Loss of personal independence in daily activities [Unknown]
  - Blood pressure systolic decreased [Unknown]

NARRATIVE: CASE EVENT DATE: 20240201
